FAERS Safety Report 17387882 (Version 1)
Quarter: 2020Q1

REPORT INFORMATION
  Report Type: Spontaneous
  Country: US (occurrence: US)
  Receive Date: 20200206
  Receipt Date: 20200206
  Transmission Date: 20200409
  Serious: No
  Sender: FDA-Public Use
  Company Number: US-RADIUS HEALTH INC.-2019US004309

PATIENT
  Age: 65 Year
  Sex: Female

DRUGS (1)
  1. TYMLOS [Suspect]
     Active Substance: ABALOPARATIDE
     Indication: OSTEOPOROSIS POSTMENOPAUSAL
     Dosage: 80 MCG, DAILY
     Route: 058
     Dates: start: 20191115

REACTIONS (7)
  - Fear of injection [Unknown]
  - Dyspepsia [Unknown]
  - Rheumatoid arthritis [Unknown]
  - Dizziness [Recovered/Resolved]
  - Nausea [Unknown]
  - Product quality issue [Unknown]
  - Dysgeusia [Unknown]

NARRATIVE: CASE EVENT DATE: 20191115
